FAERS Safety Report 17950880 (Version 1)
Quarter: 2020Q2

REPORT INFORMATION
  Report Type: Report from Study
  Country: US (occurrence: US)
  Receive Date: 20200626
  Receipt Date: 20200626
  Transmission Date: 20200714
  Serious: Yes (Hospitalization)
  Sender: FDA-Public Use
  Company Number: US-BRISTOL-MYERS SQUIBB COMPANY-BMS-2020-049178

PATIENT
  Sex: Female
  Weight: 75.74 kg

DRUGS (1)
  1. ABATACEPT [Suspect]
     Active Substance: ABATACEPT
     Indication: RHEUMATOID ARTHRITIS
     Dosage: UNK UNK, QMO
     Route: 042

REACTIONS (6)
  - Rheumatoid nodule [Unknown]
  - Pyrexia [Unknown]
  - Lung disorder [Unknown]
  - Chills [Unknown]
  - Bronchospasm [Unknown]
  - Myalgia [Unknown]
